FAERS Safety Report 16153852 (Version 1)
Quarter: 2019Q2

REPORT INFORMATION
  Report Type: Spontaneous
  Country: CN (occurrence: CN)
  Receive Date: 20190403
  Receipt Date: 20190403
  Transmission Date: 20190711
  Serious: Yes (Hospitalization)
  Sender: FDA-Public Use
  Company Number: CN-ASTRAZENECA-2018SF54986

PATIENT
  Age: 39 Year
  Sex: Male
  Weight: 75 kg

DRUGS (11)
  1. SYMBICORT [Suspect]
     Active Substance: BUDESONIDE\FORMOTEROL FUMARATE DIHYDRATE
     Indication: HYPOVENTILATION
     Dosage: 160/4.5 UG ONE PUFF IN THE MORNING
     Route: 055
     Dates: start: 20181116
  2. SYMBICORT [Suspect]
     Active Substance: BUDESONIDE\FORMOTEROL FUMARATE DIHYDRATE
     Indication: HYPOVENTILATION
     Dosage: 160/4.5 UG IN THE EVENING
     Route: 055
     Dates: start: 20181118
  3. SALBUTAMOL [Concomitant]
     Active Substance: ALBUTEROL
  4. SYMBICORT [Suspect]
     Active Substance: BUDESONIDE\FORMOTEROL FUMARATE DIHYDRATE
     Indication: ASTHMA
     Dosage: 160/4.5 UG ONE PUFF IN THE MORNING
     Route: 055
     Dates: start: 20181116
  5. THEOPHYLLINE [Concomitant]
     Active Substance: THEOPHYLLINE ANHYDROUS
  6. SYMBICORT [Suspect]
     Active Substance: BUDESONIDE\FORMOTEROL FUMARATE DIHYDRATE
     Indication: HYPOVENTILATION
     Dosage: 160/4.5 UG ONE PUFF IN THE MORNING AND ONE PUFF IN THE EVENING
     Route: 055
     Dates: start: 20181117
  7. SYMBICORT [Suspect]
     Active Substance: BUDESONIDE\FORMOTEROL FUMARATE DIHYDRATE
     Indication: ASTHMA
     Dosage: 160/4.5 UG ONE PUFF IN THE MORNING AND ONE PUFF IN THE EVENING
     Route: 055
     Dates: start: 20181117
  8. SYMBICORT [Suspect]
     Active Substance: BUDESONIDE\FORMOTEROL FUMARATE DIHYDRATE
     Indication: ASTHMA
     Dosage: 160/4.5 UG IN THE EVENING
     Route: 055
     Dates: start: 20181118
  9. SYMBICORT [Suspect]
     Active Substance: BUDESONIDE\FORMOTEROL FUMARATE DIHYDRATE
     Indication: HYPOVENTILATION
     Dosage: 160/4.5 UG ONE PUFF IN THE MORNING
     Route: 055
     Dates: start: 20181119
  10. SYMBICORT [Suspect]
     Active Substance: BUDESONIDE\FORMOTEROL FUMARATE DIHYDRATE
     Indication: ASTHMA
     Dosage: 160/4.5 UG ONE PUFF IN THE MORNING
     Route: 055
     Dates: start: 20181119
  11. ASMETON [Concomitant]
     Active Substance: AMINOPHYLLINE\CHLORPHENIRAMINE MALEATE\METHOXYPHENAMINE HYDROCHLORIDE\NOSCAPINE
     Indication: ASTHMA
     Dosage: ONE PUFF IN THE EVENING
     Route: 048
     Dates: start: 20181116

REACTIONS (7)
  - Dyspnoea [Recovered/Resolved]
  - Off label use [Unknown]
  - Anxiety [Recovered/Resolved]
  - Condition aggravated [Recovered/Resolved]
  - Chest discomfort [Recovered/Resolved]
  - Sputum increased [Recovered/Resolved]
  - Product use in unapproved indication [Unknown]

NARRATIVE: CASE EVENT DATE: 20181117
